FAERS Safety Report 4333870-6 (Version None)
Quarter: 2004Q2

REPORT INFORMATION
  Report Type: 
  Country: None (occurrence: None)
  Receive Date: 20040407
  Receipt Date: 20040317
  Transmission Date: 20050107
  Serious: Yes (Other)
  Sender: FDA-Public Use
  Company Number: 200413273GDDC

PATIENT
  Age: 36 Year
  Sex: Female

DRUGS (2)
  1. LANTUS [Suspect]
     Indication: DIABETES MELLITUS
     Dosage: DOSE UNIT: UNITS
     Route: 058
     Dates: start: 20040227, end: 20040310
  2. RENITEC [Concomitant]
     Indication: HYPERTENSION
     Route: 048
     Dates: start: 20030617

REACTIONS (3)
  - INJECTION SITE BURNING [None]
  - OLIGURIA [None]
  - PROTEINURIA [None]
